FAERS Safety Report 8590888-5 (Version None)
Quarter: 2012Q3

REPORT INFORMATION
  Report Type: 
  Country: None (occurrence: None)
  Receive Date: 20120813
  Receipt Date: 20120731
  Transmission Date: 20120928
  Serious: Yes (Hospitalization)
  Sender: FDA-Public Use
  Company Number: AR-FRI-1000037295

PATIENT
  Age: 65 Year
  Sex: Female

DRUGS (9)
  1. AMLODIPINE [Concomitant]
     Dosage: 10 MG
     Dates: start: 20040101
  2. ALBUTEROL SULATE [Concomitant]
     Dates: start: 20110101
  3. ASPIRIN [Concomitant]
     Dosage: 100 MG
     Dates: start: 20070101
  4. FLUTICASONE PROPIONATE/SALMETEROL [Concomitant]
     Indication: CHRONIC OBSTRUCTIVE PULMONARY DISEASE
     Dosage: 1000 MCG / 100 MCG
     Dates: start: 20110101
  5. OMEPRAZOLE [Concomitant]
     Dosage: 20 MG
     Dates: start: 20050101
  6. DILTIAZEM [Concomitant]
     Dosage: 120 MG
     Dates: start: 20070101
  7. ROFLUMILAST [Suspect]
     Indication: CHRONIC OBSTRUCTIVE PULMONARY DISEASE
     Dosage: 500 MCG
     Dates: start: 20120605, end: 20120630
  8. TIOTROPIUM [Concomitant]
     Indication: CHRONIC OBSTRUCTIVE PULMONARY DISEASE
     Dosage: 1 DF
  9. CILOSTAZOL [Concomitant]
     Dosage: 100 MG
     Dates: start: 20070101

REACTIONS (6)
  - DYSPNOEA [None]
  - NASAL CONGESTION [None]
  - RHINORRHOEA [None]
  - RESPIRATORY FAILURE [None]
  - BRONCHOSPASM [None]
  - NASAL DISCOMFORT [None]
